FAERS Safety Report 20000700 (Version 1)
Quarter: 2021Q4

REPORT INFORMATION
  Report Type: Spontaneous
  Country: US (occurrence: US)
  Receive Date: 20211026
  Receipt Date: 20211026
  Transmission Date: 20220303
  Serious: No
  Sender: FDA-Public Use
  Company Number: None

PATIENT
  Sex: Female
  Weight: 105.75 kg

DRUGS (22)
  1. EVEROLIMUS [Suspect]
     Active Substance: EVEROLIMUS
     Indication: Breast cancer
     Route: 048
     Dates: start: 20210906
  2. ACYCLOVIR [Concomitant]
     Active Substance: ACYCLOVIR
  3. ADDERALL [Concomitant]
     Active Substance: AMPHETAMINE ASPARTATE\AMPHETAMINE SULFATE\DEXTROAMPHETAMINE SACCHARATE\DEXTROAMPHETAMINE SULFATE
  4. AMBIEN [Concomitant]
     Active Substance: ZOLPIDEM TARTRATE
  5. AMITRIPTYLINE [Concomitant]
     Active Substance: AMITRIPTYLINE
  6. CLINDAMYCIN [Concomitant]
     Active Substance: CLINDAMYCIN
  7. DIPHENHYDRAMINE [Concomitant]
     Active Substance: DIPHENHYDRAMINE
  8. EVEROLIMUS [Concomitant]
     Active Substance: EVEROLIMUS
  9. FENTANYL [Concomitant]
     Active Substance: FENTANYL
  10. LIDOCAINE\PRILOCAINE [Concomitant]
     Active Substance: LIDOCAINE\PRILOCAINE
  11. LINZESS [Concomitant]
     Active Substance: LINACLOTIDE
  12. LYRICA [Concomitant]
     Active Substance: PREGABALIN
  13. METOCLOPRAMIDE [Concomitant]
     Active Substance: METOCLOPRAMIDE
  14. ONDANSETRON [Concomitant]
     Active Substance: ONDANSETRON
  15. OXYCODONE [Concomitant]
     Active Substance: OXYCODONE
  16. PANTOPRAZOLE [Concomitant]
     Active Substance: PANTOPRAZOLE
  17. PROMETHAZINE [Concomitant]
     Active Substance: PROMETHAZINE HYDROCHLORIDE
  18. REXULTI [Concomitant]
     Active Substance: BREXPIPRAZOLE
  19. TAMOXIFEN [Concomitant]
     Active Substance: TAMOXIFEN
  20. TOPIRAMATE [Concomitant]
     Active Substance: TOPIRAMATE
  21. TRAMADOL [Concomitant]
     Active Substance: TRAMADOL
  22. TRAZODONE [Concomitant]
     Active Substance: TRAZODONE HYDROCHLORIDE

REACTIONS (1)
  - Alopecia [None]
